FAERS Safety Report 13777679 (Version 3)
Quarter: 2017Q3

REPORT INFORMATION
  Report Type: Report from Study
  Country: None (occurrence: GB)
  Receive Date: 20170721
  Receipt Date: 20170728
  Transmission Date: 20171127
  Serious: Yes (Disabling, Other)
  Sender: FDA-Public Use
  Company Number: GB-ABBVIE-17K-167-2028935-00

PATIENT
  Age: 65 Year
  Sex: Male

DRUGS (2)
  1. DUODOPA [Suspect]
     Active Substance: CARBIDOPA\LEVODOPA
     Dosage: 100 ML CASSETTE
     Route: 050
  2. DUODOPA [Suspect]
     Active Substance: CARBIDOPA\LEVODOPA
     Indication: PARKINSON^S DISEASE
     Dosage: 2 CASSETTE
     Route: 050
     Dates: start: 2011

REACTIONS (14)
  - Device issue [Unknown]
  - Incorrect dose administered [Unknown]
  - Stoma site discharge [Not Recovered/Not Resolved]
  - Musculoskeletal stiffness [Unknown]
  - Sensation of foreign body [Unknown]
  - Malaise [Unknown]
  - Freezing phenomenon [Unknown]
  - Gait inability [Unknown]
  - Device dislocation [Unknown]
  - Mobility decreased [Unknown]
  - Device occlusion [Unknown]
  - Device dislocation [Unknown]
  - On and off phenomenon [Not Recovered/Not Resolved]
  - Stoma site infection [Recovered/Resolved]

NARRATIVE: CASE EVENT DATE: 2017
